FAERS Safety Report 5629445-9 (Version None)
Quarter: 2008Q1

REPORT INFORMATION
  Report Type: 
  Country: None (occurrence: None)
  Receive Date: 20080218
  Receipt Date: 20080205
  Transmission Date: 20080703
  Serious: Yes (Hospitalization, Other)
  Sender: FDA-Public Use
  Company Number: CA-ELI_LILLY_AND_COMPANY-CA200802001111

PATIENT
  Sex: Female

DRUGS (7)
  1. FORTEO [Suspect]
     Indication: OSTEOPOROSIS
     Dosage: 20 UG, DAILY (1/D)
     Route: 058
     Dates: start: 20070530, end: 20080203
  2. LIPITOR [Concomitant]
  3. CALCIUM [Concomitant]
  4. VITAMIN D [Concomitant]
  5. ASPIRIN [Concomitant]
  6. NITROFURANTOIN [Concomitant]
  7. NORVASC [Concomitant]

REACTIONS (3)
  - ARTHRALGIA [None]
  - FALL [None]
  - PELVIC FRACTURE [None]
